FAERS Safety Report 24212762 (Version 1)
Quarter: 2024Q3

REPORT INFORMATION
  Report Type: Report from Study
  Country: US (occurrence: US)
  Receive Date: 20240815
  Receipt Date: 20240815
  Transmission Date: 20241016
  Serious: Yes (Hospitalization)
  Sender: ABBVIE
  Company Number: US-ABBVIE-5860191

PATIENT
  Age: 80 Year
  Sex: Male
  Weight: 90.718 kg

DRUGS (25)
  1. CREON [Suspect]
     Active Substance: PANCRELIPASE AMYLASE\PANCRELIPASE LIPASE\PANCRELIPASE PROTEASE
     Indication: Supplementation therapy
     Dosage: DOSE : 24000
     Route: 048
     Dates: start: 202309
  2. DOXAZOSIN [Concomitant]
     Active Substance: DOXAZOSIN MESYLATE
     Indication: Blood pressure measurement
     Dosage: A YEARS AGO
     Route: 048
  3. COENZYME Q10 [Concomitant]
     Active Substance: DIETARY SUPPLEMENT\UBIDECARENONE
     Indication: Product used for unknown indication
     Dosage: STARTED A YEARS AGO
     Route: 048
  4. ALLOPURINOL [Concomitant]
     Active Substance: ALLOPURINOL
     Indication: Gout
     Dosage: STARTED A YEARS AGO
     Route: 048
  5. ATORVASTATIN [Concomitant]
     Active Substance: ATORVASTATIN
     Indication: Lipids
     Dosage: STARTED A YEARS AGO
  6. TORSEMIDE [Concomitant]
     Active Substance: TORSEMIDE
     Indication: Blood pressure measurement
     Route: 048
     Dates: start: 2022
  7. LISINOPRIL [Concomitant]
     Active Substance: LISINOPRIL
     Indication: Blood pressure measurement
     Dosage: STARTED A YEARS AGO
     Route: 048
  8. Pot Chlor [Concomitant]
     Indication: Product used for unknown indication
     Route: 048
     Dates: start: 2022
  9. NOVOLOG [Concomitant]
     Active Substance: INSULIN ASPART
     Indication: Blood insulin
     Dosage: STARTED YEARS AGO
     Route: 058
  10. LANTUS [Concomitant]
     Active Substance: INSULIN GLARGINE
     Indication: Blood insulin
     Dosage: DOSAGE: 20 UNITS
     Route: 058
  11. MYRBETRIQ [Concomitant]
     Active Substance: MIRABEGRON
     Indication: Urinary tract disorder
     Route: 048
     Dates: start: 202407
  12. MECLIZINE [Concomitant]
     Active Substance: MECLIZINE HYDROCHLORIDE
     Indication: Prophylaxis
     Route: 048
     Dates: start: 202407
  13. ZOFRAN [Concomitant]
     Active Substance: ONDANSETRON HYDROCHLORIDE
     Indication: Nausea
     Dosage: FREQUENCY: PRN
     Route: 048
     Dates: start: 202407
  14. NIACIN [Concomitant]
     Active Substance: NIACIN
     Indication: Product used for unknown indication
     Dosage: STARTED A YEARS AGO
     Route: 048
  15. VITAMINS [Concomitant]
     Active Substance: VITAMINS
     Indication: Product used for unknown indication
     Dosage: STARTED A YEARS AGO
     Route: 048
  16. SACCHAROMYCES CEREVISIAE [Concomitant]
     Active Substance: SACCHAROMYCES CEREVISIAE
     Indication: Probiotic therapy
     Dosage: FREQUENCY: MON-THRU STARTED A YEARS AGO
     Route: 048
  17. VitD3 [Concomitant]
     Indication: Product used for unknown indication
     Dosage: STARTED A YEARS AGO
     Route: 048
  18. CALCIUM CITRATE [Concomitant]
     Active Substance: CALCIUM CITRATE
     Indication: Product used for unknown indication
     Dosage: FREQUENCY: TU-THU-SAT, STATED A YEARS AGO
     Route: 048
  19. CHOLINE;INOSITOL [Concomitant]
     Indication: Product used for unknown indication
     Dosage: DOSAGE: 250, STARTED A YEARS AGO
     Route: 048
  20. Ester C [Concomitant]
     Indication: Product used for unknown indication
     Dosage: STARTED A YEARS AGO
     Route: 048
  21. MELATONIN [Concomitant]
     Active Substance: MELATONIN
     Indication: Product used for unknown indication
     Dosage: FREQUENCY : TU-THU-SAT, STARTED A YEARS AGO
     Route: 048
  22. LUTEIN [Concomitant]
     Active Substance: LUTEIN
     Indication: Product used for unknown indication
     Dosage: STARTED A YEARS AGO
     Route: 048
  23. GINKGO [Concomitant]
     Active Substance: GINKGO
     Indication: Product used for unknown indication
     Dosage: STARTED A YEARS AGO
     Route: 048
  24. VITAMIN B12 [Concomitant]
     Active Substance: CYANOCOBALAMIN
     Indication: Product used for unknown indication
     Dosage: STARTED A YEARS AGO
     Route: 048
  25. VITAMIN B COMPLEX [Concomitant]
     Active Substance: CYANOCOBALAMIN\DEXPANTHENOL\NIACINAMIDE\PYRIDOXINE HYDROCHLORIDE\RIBOFLAVIN 5^-PHOSPHATE SODIUM\THIA
     Indication: Product used for unknown indication
     Dosage: STARTED YEARS AGO
     Route: 048

REACTIONS (4)
  - Vertigo [Recovered/Resolved]
  - Hypophagia [Unknown]
  - Vertigo [Recovered/Resolved]
  - Vertigo [Recovered/Resolved]

NARRATIVE: CASE EVENT DATE: 20230901
